FAERS Safety Report 6131591-0 (Version None)
Quarter: 2009Q1

REPORT INFORMATION
  Report Type: 
  Country: None (occurrence: None)
  Receive Date: 20090325
  Receipt Date: 20081113
  Transmission Date: 20090719
  Serious: No
  Sender: FDA-Public Use
  Company Number: US-BRISTOL-MYERS SQUIBB COMPANY-14406565

PATIENT
  Age: 72 Year
  Sex: Female

DRUGS (4)
  1. ERBITUX [Suspect]
     Indication: COLORECTAL CANCER METASTATIC
     Dosage: ADMINISTERED PERIPHERALLY VIA INFUSION PUMP
     Route: 042
     Dates: start: 20081001
  2. DECADRON [Concomitant]
     Indication: PREMEDICATION
     Route: 042
  3. BENADRYL [Concomitant]
     Indication: PREMEDICATION
     Route: 042
  4. TYLENOL [Concomitant]
     Indication: PREMEDICATION
     Route: 048

REACTIONS (1)
  - INJECTION SITE EXTRAVASATION [None]
